FAERS Safety Report 9350347 (Version 1)
Quarter: 2013Q2

REPORT INFORMATION
  Report Type: Spontaneous
  Country: US (occurrence: None)
  Receive Date: 20130613
  Receipt Date: 20130613
  Transmission Date: 20140414
  Serious: No
  Sender: FDA-Public Use
  Company Number: None

PATIENT
  Age: 55 Year
  Sex: Female
  Weight: 52.16 kg

DRUGS (1)
  1. BUTALBITAL-CAFF [Suspect]
     Route: 048
     Dates: start: 2012, end: 2013

REACTIONS (2)
  - Drug ineffective [None]
  - Product quality issue [None]
